FAERS Safety Report 7578993-3 (Version None)
Quarter: 2011Q2

REPORT INFORMATION
  Report Type: 
  Country: None (occurrence: None)
  Receive Date: 20110628
  Receipt Date: 20110622
  Transmission Date: 20111010
  Serious: Yes (Other)
  Sender: FDA-Public Use
  Company Number: FR-VALEANT-2011VX001794

PATIENT
  Age: 37 Year
  Sex: Female

DRUGS (2)
  1. AMBISOME [Concomitant]
     Indication: ENDOCARDITIS CANDIDA
     Route: 065
  2. ANCOTIL [Suspect]
     Indication: ENDOCARDITIS CANDIDA
     Route: 041
     Dates: start: 20110609, end: 20110609

REACTIONS (1)
  - ACCIDENTAL OVERDOSE [None]
